FAERS Safety Report 11866879 (Version 1)
Quarter: 2015Q4

REPORT INFORMATION
  Report Type: Spontaneous
  Country: US (occurrence: US)
  Receive Date: 20151224
  Receipt Date: 20151224
  Transmission Date: 20160305
  Serious: Yes (Death)
  Sender: FDA-Public Use
  Company Number: PHEH2015US026740

PATIENT
  Age: 38 Year
  Sex: Female

DRUGS (1)
  1. VOTRIENT [Suspect]
     Active Substance: PAZOPANIB HYDROCHLORIDE
     Indication: BREAST CANCER FEMALE
     Dosage: 800 MG, QD
     Route: 048
     Dates: start: 20151120

REACTIONS (1)
  - Death [Fatal]

NARRATIVE: CASE EVENT DATE: 20151209
